FAERS Safety Report 19828543 (Version 4)
Quarter: 2022Q3

REPORT INFORMATION
  Report Type: Spontaneous
  Country: US (occurrence: US)
  Receive Date: 20210915
  Receipt Date: 20220714
  Transmission Date: 20221026
  Serious: Yes (Hospitalization, Other)
  Sender: FDA-Public Use
  Company Number: US-SA-SAC20210913000174

PATIENT
  Age: 68 Year
  Sex: Female

DRUGS (24)
  1. DUPIXENT [Suspect]
     Active Substance: DUPILUMAB
     Indication: Osteoarthritis
     Dosage: 300 MG, QOW
     Route: 058
     Dates: start: 2020
  2. DUPIXENT [Suspect]
     Active Substance: DUPILUMAB
     Indication: Dermatitis atopic
  3. DUPIXENT [Suspect]
     Active Substance: DUPILUMAB
     Indication: Dermatitis atopic
     Dosage: 300 MG, QOW
     Route: 058
     Dates: start: 202107
  4. OMEPRAZOLE [Concomitant]
     Active Substance: OMEPRAZOLE
  5. LIDOCAINE [Concomitant]
     Active Substance: LIDOCAINE
  6. POTASSIUM CITRATE [Concomitant]
     Active Substance: POTASSIUM CITRATE
  7. METOCLOPRAMIDE [Concomitant]
     Active Substance: METOCLOPRAMIDE
  8. CYCLOBENZAPRINE [Concomitant]
     Active Substance: CYCLOBENZAPRINE
  9. OXYCODONE [Concomitant]
     Active Substance: OXYCODONE
  10. BUDESONIDE [Concomitant]
     Active Substance: BUDESONIDE
  11. GABAPENTIN [Concomitant]
     Active Substance: GABAPENTIN
  12. LABETALOL [Concomitant]
     Active Substance: LABETALOL\LABETALOL HYDROCHLORIDE
  13. FOLIC ACID [Concomitant]
     Active Substance: FOLIC ACID
  14. METOLAZONE [Concomitant]
     Active Substance: METOLAZONE
  15. MORPHINE SULFATE [Concomitant]
     Active Substance: MORPHINE SULFATE
  16. TORSEMIDE [Concomitant]
     Active Substance: TORSEMIDE
  17. FLUTICASONE PROPIONATE [Concomitant]
     Active Substance: FLUTICASONE PROPIONATE
  18. SODIUM BICARBONATE [Concomitant]
     Active Substance: SODIUM BICARBONATE
  19. LORAZEPAM [Concomitant]
     Active Substance: LORAZEPAM
  20. OSELTAMIVIR PHOSPHATE [Concomitant]
     Active Substance: OSELTAMIVIR PHOSPHATE
  21. BENZONATATE [Concomitant]
     Active Substance: BENZONATATE
  22. LEVOTHYROXINE [Concomitant]
     Active Substance: LEVOTHYROXINE
  23. ALBUTEROL SULFATE [Concomitant]
     Active Substance: ALBUTEROL SULFATE
  24. FLUAD QUAD [Concomitant]

REACTIONS (5)
  - Pneumonia [Unknown]
  - Cerebrovascular accident [Unknown]
  - Blood electrolytes decreased [Unknown]
  - Hypersensitivity [Unknown]
  - Product use in unapproved indication [Unknown]

NARRATIVE: CASE EVENT DATE: 20210101
